FAERS Safety Report 9868395 (Version 2)
Quarter: 2014Q1

REPORT INFORMATION
  Report Type: Spontaneous
  Country: US (occurrence: US)
  Receive Date: 20140204
  Receipt Date: 20140220
  Transmission Date: 20141002
  Serious: Yes (Hospitalization)
  Sender: FDA-Public Use
  Company Number: US-B.I. PHARMACEUTICALS,INC./RIDGEFIELD-2014-BI-04770BP

PATIENT
  Age: 56 Year
  Sex: Female
  Weight: 76 kg

DRUGS (15)
  1. AGGRENOX [Suspect]
     Indication: CEREBROVASCULAR ACCIDENT PROPHYLAXIS
     Dosage: D:25/200MG, DD:50/400MG
     Route: 048
     Dates: start: 2008, end: 20140126
  2. AGGRENOX [Suspect]
     Indication: ANTICOAGULANT THERAPY
  3. LISINOPRIL [Concomitant]
     Indication: HYPERTENSION
     Dosage: 40 MG
     Route: 048
     Dates: start: 2007
  4. LISINOPRIL [Concomitant]
     Indication: HYPERTENSION
     Dosage: 40 MG
     Route: 048
     Dates: start: 201109
  5. PROCARDIA XL [Concomitant]
     Indication: HYPERTENSION
     Dosage: 90 MG
     Route: 048
     Dates: start: 2007
  6. PROCARDIA XL [Concomitant]
     Indication: HYPERTENSION
     Dosage: 90 MG
     Route: 048
     Dates: start: 201109
  7. LYRICA [Concomitant]
     Indication: FIBROMYALGIA
     Dosage: 150 MG
     Route: 048
     Dates: start: 2007
  8. LYRICA [Concomitant]
     Indication: NEURALGIA
     Dosage: 150 MG
     Route: 048
     Dates: start: 201109
  9. SYNTHROID [Concomitant]
     Indication: HYPOTHYROIDISM
     Dosage: 0.75 MCG
     Route: 048
     Dates: start: 1980
  10. ASPIRIN [Concomitant]
     Indication: CEREBROVASCULAR ACCIDENT PROPHYLAXIS
     Dosage: 325 MG
     Route: 048
     Dates: start: 20140126
  11. LEVOTHYROXINE [Concomitant]
     Indication: THYROID DISORDER
     Dosage: STRENGTH: 0.75
     Dates: start: 201109
  12. CRESTOR [Concomitant]
     Indication: LIPIDS ABNORMAL
  13. ZOLPIDEM [Concomitant]
     Indication: INSOMNIA
     Dates: start: 201109
  14. SOMA 350 [Concomitant]
     Indication: MUSCLE SPASMS
     Dates: start: 201109
  15. HYDROCODONE IAP [Concomitant]
     Indication: PAIN
     Dates: start: 201109

REACTIONS (3)
  - Bronchitis [Recovered/Resolved]
  - Decreased appetite [Not Recovered/Not Resolved]
  - Epistaxis [Recovered/Resolved]
